FAERS Safety Report 8125402-1 (Version None)
Quarter: 2012Q1

REPORT INFORMATION
  Report Type: 
  Country: None (occurrence: None)
  Receive Date: 20120209
  Receipt Date: 20120203
  Transmission Date: 20120608
  Serious: Yes (Hospitalization, Other)
  Sender: FDA-Public Use
  Company Number: FR-MERCK-1202USA01186

PATIENT
  Age: 40 Year
  Sex: Female

DRUGS (8)
  1. KEPPRA [Suspect]
     Indication: AGITATION
     Dosage: 500 MG EVERY 2 DAYS
     Route: 042
     Dates: start: 20111215, end: 20111218
  2. NOREPINEPHRINE [Concomitant]
     Route: 065
     Dates: start: 20111202, end: 20111222
  3. INSULIN HUMAN [Concomitant]
     Route: 065
     Dates: start: 20111202
  4. INVANZ [Suspect]
     Indication: PNEUMONIA
     Route: 042
     Dates: start: 20111212, end: 20111218
  5. PENTOTHAL [Suspect]
     Indication: HAEMORRHAGE
     Route: 042
     Dates: start: 20111202, end: 20111214
  6. NEXIUM [Suspect]
     Route: 048
     Dates: start: 20111202, end: 20111218
  7. SUFENTANIL [Concomitant]
     Indication: SEDATION
     Route: 065
     Dates: start: 20111202, end: 20111222
  8. MIDAZOLAM HCL [Concomitant]
     Indication: SEDATION
     Route: 042
     Dates: start: 20111202, end: 20111222

REACTIONS (1)
  - AGRANULOCYTOSIS [None]
